FAERS Safety Report 4987562-0 (Version None)
Quarter: 2006Q2

REPORT INFORMATION
  Report Type: 
  Country: None (occurrence: None)
  Receive Date: 20060424
  Receipt Date: 20060405
  Transmission Date: 20061013
  Serious: Yes (Hospitalization)
  Sender: FDA-Public Use
  Company Number: US200604001048

PATIENT
  Age: 84 Year
  Sex: Female

DRUGS (2)
  1. FORTEO [Suspect]
     Indication: MULTIPLE FRACTURES
     Dates: start: 20040101
  2. FORTEO [Concomitant]

REACTIONS (3)
  - CONDITION AGGRAVATED [None]
  - GASTRITIS [None]
  - MALAISE [None]
